FAERS Safety Report 6157453-0 (Version None)
Quarter: 2009Q2

REPORT INFORMATION
  Report Type: 
  Country: None (occurrence: None)
  Receive Date: 20090416
  Receipt Date: 20090408
  Transmission Date: 20091009
  Serious: Yes (Other)
  Sender: FDA-Public Use
  Company Number: BR-PFIZER INC-2009161996

PATIENT
  Sex: Female

DRUGS (3)
  1. CELEBRA [Suspect]
     Indication: ARTHRITIS
     Dosage: 200 MG, 1X/DAY
     Route: 048
     Dates: start: 20010101
  2. VALSARTAN [Concomitant]
     Dosage: 160 MG, UNK
     Dates: start: 20060101
  3. SIMVASTATIN [Concomitant]
     Dosage: 20 MG, UNK
     Dates: start: 20060101

REACTIONS (2)
  - LIVER DISORDER [None]
  - PAIN [None]
